FAERS Safety Report 7842960-2 (Version None)
Quarter: 2011Q4

REPORT INFORMATION
  Report Type: 
  Country: None (occurrence: None)
  Receive Date: 20111025
  Receipt Date: 20111013
  Transmission Date: 20120403
  Serious: Yes (Other)
  Sender: FDA-Public Use
  Company Number: CA-ELI_LILLY_AND_COMPANY-CA201110003072

PATIENT
  Sex: Female

DRUGS (3)
  1. HALDOL [Concomitant]
  2. ZYPREXA [Suspect]
     Indication: BIPOLAR DISORDER
     Dosage: 1 DF, UNK
     Dates: start: 19970813, end: 19980803
  3. VALPROATE SODIUM [Concomitant]

REACTIONS (15)
  - HEPATIC ENZYME INCREASED [None]
  - WEIGHT INCREASED [None]
  - BLOOD CHOLESTEROL INCREASED [None]
  - ASPARTATE AMINOTRANSFERASE INCREASED [None]
  - DIABETES MELLITUS [None]
  - HEPATOMEGALY [None]
  - SKIN STRIAE [None]
  - HEPATIC STEATOSIS [None]
  - LIVER DISORDER [None]
  - BREAST CANCER [None]
  - PANCREATITIS [None]
  - BLOOD TRIGLYCERIDES INCREASED [None]
  - PLATELET COUNT DECREASED [None]
  - ALANINE AMINOTRANSFERASE INCREASED [None]
  - BLOOD GLUCOSE ABNORMAL [None]
